FAERS Safety Report 6906570-3 (Version None)
Quarter: 2010Q3

REPORT INFORMATION
  Report Type: 
  Country: None (occurrence: None)
  Receive Date: 20100804
  Receipt Date: 20100721
  Transmission Date: 20110219
  Serious: Yes (Hospitalization, Other)
  Sender: FDA-Public Use
  Company Number: US-BAYER-201016363NA

PATIENT
  Age: 50 Year
  Sex: Female
  Weight: 61 kg

DRUGS (9)
  1. YAZ [Suspect]
     Indication: PRODUCT USED FOR UNKNOWN INDICATION
     Route: 048
     Dates: start: 20080801
  2. YASMIN [Suspect]
     Indication: PRODUCT USED FOR UNKNOWN INDICATION
     Route: 048
     Dates: start: 20080801
  3. DROSPIRENONE AND EHTINYL ESTRADIOL [Suspect]
     Indication: MENORRHAGIA
     Route: 048
     Dates: start: 20080801, end: 20090201
  4. IBUPROFEN [Concomitant]
     Indication: MYALGIA
  5. SEASONIQUE [Concomitant]
     Indication: MENORRHAGIA
     Dates: start: 20090301
  6. OXYBUTYNIN CHLORIDE [Concomitant]
     Dosage: 3.9 MG/24HR
  7. PHENAZOPYRIDINE HCL TAB [Concomitant]
     Route: 048
  8. PHENAZOPYRIDINE HCL TAB [Concomitant]
     Route: 048
  9. MEDROXYPROGESTERONE [Concomitant]
     Dosage: 150 MG/ML
     Route: 030

REACTIONS (9)
  - CHEST DISCOMFORT [None]
  - DIZZINESS [None]
  - DYSPNOEA [None]
  - HYPERHIDROSIS [None]
  - MENTAL DISORDER [None]
  - PRESYNCOPE [None]
  - PULMONARY EMBOLISM [None]
  - TACHYCARDIA [None]
  - TACHYPNOEA [None]
